FAERS Safety Report 10244768 (Version 1)
Quarter: 2014Q2

REPORT INFORMATION
  Report Type: Spontaneous
  Country: US (occurrence: US)
  Receive Date: 20140618
  Receipt Date: 20140618
  Transmission Date: 20141212
  Serious: No
  Sender: FDA-Public Use
  Company Number: US-ASTRAZENECA-2014SE39911

PATIENT
  Age: 85 Year
  Sex: Female
  Weight: 49 kg

DRUGS (6)
  1. SYMBICORT [Suspect]
     Indication: HYPERSENSITIVITY
     Dosage: ONE PUFF, TWO TIMES A DAY
     Route: 055
     Dates: end: 20140603
  2. SYMBICORT [Suspect]
     Indication: HYPERSENSITIVITY
     Dosage: ONE PUFF, DAILY
     Route: 055
     Dates: start: 20140604
  3. LASIX [Concomitant]
     Indication: PULMONARY OEDEMA
     Route: 048
  4. MINOXIDIL [Concomitant]
     Indication: BLOOD PRESSURE
     Dosage: DAILY
     Route: 048
  5. CALCIUM [Concomitant]
     Dosage: DAILY
     Route: 048
  6. VITAMINS [Concomitant]
     Dosage: DAILY
     Route: 048

REACTIONS (4)
  - Pleural effusion [Unknown]
  - Weight decreased [Unknown]
  - Dysphonia [Unknown]
  - Intentional product misuse [Unknown]
